FAERS Safety Report 23214045 (Version 1)
Quarter: 2023Q4

REPORT INFORMATION
  Report Type: Spontaneous
  Country: DE (occurrence: DE)
  Receive Date: 20231121
  Receipt Date: 20231121
  Transmission Date: 20240109
  Serious: Yes (Hospitalization)
  Sender: FDA-Public Use
  Company Number: DE-ABBVIE-5499575

PATIENT
  Sex: Male

DRUGS (1)
  1. RINVOQ [Suspect]
     Active Substance: UPADACITINIB
     Indication: Dermatitis atopic
     Route: 048

REACTIONS (4)
  - Cystitis [Recovered/Resolved]
  - Headache [Recovered/Resolved]
  - Cough [Recovered/Resolved]
  - Dizziness [Recovered/Resolved]
